FAERS Safety Report 16544746 (Version 4)
Quarter: 2019Q3

REPORT INFORMATION
  Report Type: Report from Study
  Country: ZA (occurrence: ZA)
  Receive Date: 20190709
  Receipt Date: 20190903
  Transmission Date: 20191004
  Serious: Yes (Hospitalization, Other)
  Sender: FDA-Public Use
  Company Number: ZA-JNJFOC-20190630148

PATIENT
  Age: 28 Year
  Sex: Male
  Weight: 62 kg

DRUGS (28)
  1. MEROPENEM. [Suspect]
     Active Substance: MEROPENEM
     Indication: TUBERCULOSIS
     Route: 065
  2. PYRIDOXINE [Concomitant]
     Active Substance: PYRIDOXINE
     Route: 065
     Dates: start: 20190311
  3. CLOFAZIMINE [Suspect]
     Active Substance: CLOFAZIMINE
     Indication: TUBERCULOSIS
     Route: 065
     Dates: start: 20190311, end: 20190528
  4. LAMIVUDINE. [Concomitant]
     Active Substance: LAMIVUDINE
     Route: 065
     Dates: start: 20190531
  5. SIRTURO [Suspect]
     Active Substance: BEDAQUILINE FUMARATE
     Dosage: 200 MG TWICE DAILY.
     Route: 048
     Dates: start: 20190611
  6. TERIZIDONE [Suspect]
     Active Substance: TERIZIDONE
     Indication: TUBERCULOSIS
     Route: 065
     Dates: start: 20190311, end: 20190506
  7. AMIKACIN. [Suspect]
     Active Substance: AMIKACIN
     Indication: TUBERCULOSIS
     Route: 065
     Dates: start: 20190606
  8. EFAVIRENZ W/EMTRICITABINE/TENOFOVIR DISOPROXI [Concomitant]
     Active Substance: EFAVIRENZ\EMTRICITABINE\TENOFOVIR DISOPROXIL FUMARATE
     Route: 065
     Dates: start: 201901, end: 20190311
  9. ALUVIA [Concomitant]
     Active Substance: LOPINAVIR\RITONAVIR
     Route: 065
     Dates: start: 201906
  10. PARA-AMINOSALICYLIC ACID [Suspect]
     Active Substance: AMINOSALICYLIC ACID
     Indication: TUBERCULOSIS
     Route: 065
     Dates: start: 20190506, end: 20190528
  11. NEVIRAPINE. [Suspect]
     Active Substance: NEVIRAPINE
     Indication: TUBERCULOSIS
     Route: 065
     Dates: start: 20190311, end: 20190528
  12. PYRAZINAMIDE. [Suspect]
     Active Substance: PYRAZINAMIDE
     Indication: TUBERCULOSIS
     Route: 065
     Dates: start: 20190311, end: 20190414
  13. TENOFOVIR DISOPROXIL FUMARATE. [Concomitant]
     Active Substance: TENOFOVIR DISOPROXIL FUMARATE
     Indication: PRODUCT USED FOR UNKNOWN INDICATION
     Route: 065
     Dates: start: 201903
  14. ABACAVIR. [Concomitant]
     Active Substance: ABACAVIR
  15. TERIZIDONE [Suspect]
     Active Substance: TERIZIDONE
     Route: 065
     Dates: start: 20190606
  16. EMTRICITABINE W/TENOFOVIR DISOPROXIL FUMARATE [Concomitant]
     Active Substance: EMTRICITABINE\TENOFOVIR DISOPROXIL
     Route: 065
     Dates: start: 20190311, end: 20190528
  17. ALUVIA [Concomitant]
     Active Substance: LOPINAVIR\RITONAVIR
     Indication: PRODUCT USED FOR UNKNOWN INDICATION
     Route: 065
     Dates: start: 20190531
  18. SIRTURO [Suspect]
     Active Substance: BEDAQUILINE FUMARATE
     Indication: TUBERCULOSIS
     Dosage: 200 MG TWICE DAILY.
     Route: 048
     Dates: start: 20190311, end: 20190528
  19. SIRTURO [Suspect]
     Active Substance: BEDAQUILINE FUMARATE
     Dosage: 200 MG TWICE DAILY.
     Route: 048
     Dates: start: 20190530, end: 20190606
  20. DELAMANID [Suspect]
     Active Substance: DELAMANID
     Indication: TUBERCULOSIS
     Route: 048
     Dates: start: 20190504, end: 20190528
  21. DELAMANID [Suspect]
     Active Substance: DELAMANID
     Route: 048
     Dates: start: 20190530, end: 20190606
  22. CLOFAZIMINE [Suspect]
     Active Substance: CLOFAZIMINE
     Route: 065
     Dates: start: 20190530, end: 2019
  23. PARA-AMINOSALICYLIC ACID [Suspect]
     Active Substance: AMINOSALICYLIC ACID
     Route: 065
     Dates: start: 20190530, end: 20190606
  24. PREGABALIN. [Suspect]
     Active Substance: PREGABALIN
     Indication: TUBERCULOSIS
     Route: 065
     Dates: start: 20190518, end: 20190525
  25. LAMIVUDINE. [Concomitant]
     Active Substance: LAMIVUDINE
     Indication: PRODUCT USED FOR UNKNOWN INDICATION
     Route: 065
     Dates: start: 201903
  26. CLOFAZIMINE [Suspect]
     Active Substance: CLOFAZIMINE
     Route: 065
     Dates: start: 20190606
  27. LINEZOLID. [Suspect]
     Active Substance: LINEZOLID
     Indication: TUBERCULOSIS
     Route: 065
     Dates: start: 20190606
  28. NEVIRAPINE. [Concomitant]
     Active Substance: NEVIRAPINE
     Indication: PRODUCT USED FOR UNKNOWN INDICATION
     Route: 065
     Dates: start: 201903

REACTIONS (5)
  - Drug-induced liver injury [Not Recovered/Not Resolved]
  - Respiratory distress [Unknown]
  - Pneumothorax [Unknown]
  - Cor pulmonale acute [Unknown]
  - Hyponatraemia [Unknown]

NARRATIVE: CASE EVENT DATE: 2019
